FAERS Safety Report 11980759 (Version 2)
Quarter: 2016Q3

REPORT INFORMATION
  Report Type: Spontaneous
  Country: US (occurrence: US)
  Receive Date: 20160129
  Receipt Date: 20160824
  Transmission Date: 20161109
  Serious: Yes (Hospitalization, Other)
  Sender: FDA-Public Use
  Company Number: US-IMPAX LABORATORIES, INC-2016-IPXL-00089

PATIENT
  Age: 16 Year
  Sex: Male

DRUGS (2)
  1. LAMOTRIGINE ODT [Suspect]
     Active Substance: LAMOTRIGINE
     Indication: COMPLEX PARTIAL SEIZURES
     Dosage: UNK
     Route: 065
  2. LAMOTRIGINE ODT [Suspect]
     Active Substance: LAMOTRIGINE
     Dosage: DOSE INCREASED
     Route: 065

REACTIONS (9)
  - Chorioretinopathy [Unknown]
  - Seizure [Unknown]
  - Deafness neurosensory [Unknown]
  - Retinal artery occlusion [Recovering/Resolving]
  - Tubulointerstitial nephritis and uveitis syndrome [Recovered/Resolved]
  - Cogan^s syndrome [Unknown]
  - Ocular hypertension [Recovering/Resolving]
  - Scleritis [Unknown]
  - Treatment noncompliance [Unknown]
